FAERS Safety Report 16763185 (Version 4)
Quarter: 2021Q1

REPORT INFORMATION
  Report Type: Spontaneous
  Country: US (occurrence: US)
  Receive Date: 20190902
  Receipt Date: 20210309
  Transmission Date: 20210419
  Serious: Yes (Other)
  Sender: FDA-Public Use
  Company Number: US-GILEAD-2019-0425714

PATIENT
  Age: 56 Year
  Sex: Male

DRUGS (3)
  1. DESCOVY [Concomitant]
     Active Substance: EMTRICITABINE\TENOFOVIR ALAFENAMIDE FUMARATE
  2. TRUVADA [Suspect]
     Active Substance: EMTRICITABINE\TENOFOVIR DISOPROXIL FUMARATE
     Indication: HIV INFECTION
     Dosage: UNK
     Route: 048
     Dates: start: 2008, end: 2014
  3. BIKTARVY [Concomitant]
     Active Substance: BICTEGRAVIR SODIUM\EMTRICITABINE\TENOFOVIR ALAFENAMIDE FUMARATE

REACTIONS (9)
  - Anxiety [Not Recovered/Not Resolved]
  - Emotional distress [Unknown]
  - Osteopenia [Not Recovered/Not Resolved]
  - Tooth loss [Unknown]
  - Anhedonia [Unknown]
  - Bone density decreased [Unknown]
  - Pain [Not Recovered/Not Resolved]
  - Osteomalacia [Unknown]
  - Economic problem [Not Recovered/Not Resolved]

NARRATIVE: CASE EVENT DATE: 2012
